FAERS Safety Report 8288234-X (Version None)
Quarter: 2012Q2

REPORT INFORMATION
  Report Type: 
  Country: None (occurrence: None)
  Receive Date: 20120416
  Receipt Date: 20120403
  Transmission Date: 20120825
  Serious: Yes (Death, Other)
  Sender: FDA-Public Use
  Company Number: DE-ROCHE-1056598

PATIENT
  Sex: Female

DRUGS (3)
  1. CYCLOSPORINE [Concomitant]
     Dates: start: 20060701
  2. MABTHERA [Suspect]
     Indication: RHEUMATOID ARTHRITIS
     Dosage: UNKNOWN
     Route: 065
     Dates: start: 20070612
  3. METHOTREXATE [Concomitant]
     Indication: RHEUMATOID ARTHRITIS
     Route: 048
     Dates: start: 20061101

REACTIONS (4)
  - CIRCULATORY COLLAPSE [None]
  - DECUBITUS ULCER [None]
  - DIARRHOEA [None]
  - SEPSIS [None]
